FAERS Safety Report 20353869 (Version 1)
Quarter: 2022Q1

REPORT INFORMATION
  Report Type: Spontaneous
  Country: CN (occurrence: None)
  Receive Date: 20220120
  Receipt Date: 20220120
  Transmission Date: 20220423
  Serious: Yes (Other)
  Sender: FDA-Public Use
  Company Number: CN-ROCHE-3002374

PATIENT
  Age: 50 Year
  Sex: Female

DRUGS (10)
  1. MABTHERA [Suspect]
     Active Substance: RITUXIMAB
     Indication: Mantle cell lymphoma
     Dosage: ON DAY 0
     Route: 065
  2. MABTHERA [Suspect]
     Active Substance: RITUXIMAB
     Dosage: ON DAY 0
     Route: 065
  3. CYCLOPHOSPHAMIDE [Concomitant]
     Active Substance: CYCLOPHOSPHAMIDE
     Indication: Mantle cell lymphoma
     Dosage: ON DAY 1
  4. DOXORUBICIN [Concomitant]
     Active Substance: DOXORUBICIN
     Indication: Mantle cell lymphoma
     Dosage: ON DAY 1
  5. VINDESINE [Concomitant]
     Active Substance: VINDESINE
     Indication: Mantle cell lymphoma
     Dosage: ON DAY 1
  6. PREDNISONE ACETATE [Concomitant]
     Active Substance: PREDNISONE ACETATE
     Indication: Mantle cell lymphoma
     Dosage: FROM DAY 1 TO DAY 5
  7. DEXAMETHASONE [Concomitant]
     Active Substance: DEXAMETHASONE
     Indication: Mantle cell lymphoma
     Dosage: FROM DAY 1 TO DAY 4
  8. CYTARABINE [Concomitant]
     Active Substance: CYTARABINE
     Indication: Mantle cell lymphoma
     Dosage: ON DAY 2
  9. CYTARABINE [Concomitant]
     Active Substance: CYTARABINE
  10. CISPLATIN [Concomitant]
     Active Substance: CISPLATIN
     Indication: Mantle cell lymphoma
     Dosage: MAINTENANCE 24 HOURS ON DAY 1

REACTIONS (3)
  - Agranulocytosis [Unknown]
  - Off label use [Unknown]
  - Pyrexia [Unknown]
